FAERS Safety Report 21051068 (Version 2)
Quarter: 2022Q3

REPORT INFORMATION
  Report Type: Report from Study
  Country: ES (occurrence: ES)
  Receive Date: 20220707
  Receipt Date: 20220811
  Transmission Date: 20221027
  Serious: Yes (Other)
  Sender: FDA-Public Use
  Company Number: ES-SAMSUNG BIOEPIS-SB-2022-16512

PATIENT
  Age: 60 Year
  Sex: Female

DRUGS (1)
  1. IMRALDI [Suspect]
     Active Substance: ADALIMUMAB
     Indication: Spondyloarthropathy
     Dosage: UNKNOWN, SOLUTION FOR INJECTION IN PRE-FILLED SYRINGE, 1 PRE-FILLED SYRINGE OF 0.8 ML
     Route: 058
     Dates: start: 20220202

REACTIONS (3)
  - Vulvovaginitis streptococcal [Recovered/Resolved]
  - Cystitis [Recovered/Resolved]
  - Product use in unapproved indication [Unknown]

NARRATIVE: CASE EVENT DATE: 20220311
